FAERS Safety Report 16070455 (Version 2)
Quarter: 2019Q2

REPORT INFORMATION
  Report Type: Report from Study
  Country: US (occurrence: US)
  Receive Date: 20190314
  Receipt Date: 20190409
  Transmission Date: 20190711
  Serious: No
  Sender: FDA-Public Use
  Company Number: PHEH2019US010819

PATIENT
  Age: 44 Year
  Sex: Female

DRUGS (4)
  1. SULINDAC. [Concomitant]
     Active Substance: SULINDAC
     Indication: PRODUCT USED FOR UNKNOWN INDICATION
     Route: 065
  2. COSENTYX [Suspect]
     Active Substance: SECUKINUMAB
     Indication: PSORIASIS
     Dosage: 300 MG, QW (AT WEEK 0, 1, 2, 3 AND 4 AND Q4W THEREAFTER)
     Route: 058
  3. COSENTYX [Suspect]
     Active Substance: SECUKINUMAB
     Dosage: 300 MG, QMO
     Route: 058
  4. COSENTYX [Suspect]
     Active Substance: SECUKINUMAB
     Indication: PSORIATIC ARTHROPATHY
     Dosage: 300 MG, QW (3RD DOSE, WEEK 2)
     Route: 058
     Dates: start: 20190305

REACTIONS (6)
  - Diarrhoea [Unknown]
  - Fatigue [Unknown]
  - Injection site bruising [Recovering/Resolving]
  - Headache [Unknown]
  - Frequent bowel movements [Unknown]
  - Drug ineffective [Unknown]
